FAERS Safety Report 9390413 (Version 1)
Quarter: 2013Q3

REPORT INFORMATION
  Report Type: Report from Study
  Country: AU (occurrence: AU)
  Receive Date: 20130709
  Receipt Date: 20130709
  Transmission Date: 20140515
  Serious: Yes (Hospitalization)
  Sender: FDA-Public Use
  Company Number: PHHY2013AU072152

PATIENT
  Age: 78 Year
  Sex: Female

DRUGS (2)
  1. ACLASTA [Suspect]
     Dosage: 5 MG, UNK
     Route: 042
     Dates: start: 20110805
  2. ACLASTA [Suspect]
     Dosage: 5 MG, UNK
     Route: 042
     Dates: start: 20120712

REACTIONS (4)
  - Hip fracture [Recovering/Resolving]
  - Cholelithiasis [Recovering/Resolving]
  - Fall [Recovering/Resolving]
  - Impaired healing [Unknown]
